FAERS Safety Report 21671554 (Version 1)
Quarter: 2022Q4

REPORT INFORMATION
  Report Type: Spontaneous
  Country: SK (occurrence: SK)
  Receive Date: 20221202
  Receipt Date: 20221202
  Transmission Date: 20230113
  Serious: Yes (Death, Life-Threatening, Hospitalization, Other)
  Sender: FDA-Public Use
  Company Number: SK-MACLEODS PHARMACEUTICALS US LTD-MAC2022038437

PATIENT

DRUGS (5)
  1. VENLAFAXINE [Suspect]
     Active Substance: VENLAFAXINE HYDROCHLORIDE
     Indication: Schizophrenia
     Dosage: UNK
     Route: 065
     Dates: start: 2021
  2. QUETIAPINE [Suspect]
     Active Substance: QUETIAPINE
     Indication: Schizophrenia
     Dosage: 600 MILLIGRAM, QD
     Route: 065
     Dates: start: 2021
  3. PALIPERIDONE [Suspect]
     Active Substance: PALIPERIDONE
     Indication: Schizophrenia
     Dosage: 9 MILLIGRAM, QD
     Route: 065
     Dates: start: 2021
  4. ZUCLOPENTHIXOL DECANOATE [Concomitant]
     Active Substance: ZUCLOPENTHIXOL DECANOATE
     Indication: Schizophrenia
     Dosage: 200 MILLIGRAM PER 21 DAYS
     Route: 065
     Dates: start: 2021
  5. VALPROATE SODIUM [Concomitant]
     Active Substance: VALPROATE SODIUM
     Indication: Schizophrenia
     Dosage: 300 MILLIGRAM, QD
     Route: 065
     Dates: start: 2021

REACTIONS (7)
  - Electrocardiogram QT prolonged [Fatal]
  - Cardiac failure [Fatal]
  - Antipsychotic drug level above therapeutic [Fatal]
  - Ventricular arrhythmia [Fatal]
  - Antidepressant drug level above therapeutic [Fatal]
  - Myocarditis [Fatal]
  - Myocarditis [Fatal]

NARRATIVE: CASE EVENT DATE: 20210101
